FAERS Safety Report 12886052 (Version 1)
Quarter: 2016Q4

REPORT INFORMATION
  Report Type: Spontaneous
  Country: US (occurrence: US)
  Receive Date: 20161025
  Receipt Date: 20161025
  Transmission Date: 20170207
  Serious: Yes (Other)
  Sender: FDA-Public Use
  Company Number: None

PATIENT
  Age: 60 Year
  Sex: Female
  Weight: 113.4 kg

DRUGS (16)
  1. ZINC [Concomitant]
     Active Substance: ZINC\ZINC CHLORIDE
  2. TURMERIC [Concomitant]
     Active Substance: TURMERIC
  3. VITAMIN B12 [Concomitant]
     Active Substance: CYANOCOBALAMIN
  4. I-CAPS [Concomitant]
  5. ZIAC [Concomitant]
     Active Substance: BISOPROLOL FUMARATE\HYDROCHLOROTHIAZIDE
  6. ALEVE [Concomitant]
     Active Substance: NAPROXEN SODIUM
  7. BAYER ASPIRIN [Concomitant]
     Active Substance: ASPIRIN
  8. CENTRUM SILVER WOMAN [Concomitant]
  9. POTASSIUM GLUCONATE [Concomitant]
     Active Substance: POTASSIUM GLUCONATE
  10. COENZYME Q10 [Concomitant]
     Active Substance: UBIDECARENONE
  11. BETA CAROTENE [Concomitant]
  12. ENOXAPARIN SODIUM INJECTION, USP 60MG/0.6ML [Suspect]
     Active Substance: ENOXAPARIN SODIUM
     Indication: THROMBOSIS PROPHYLAXIS
     Dosage: ?          QUANTITY:1 INJECTION(S); EVERY 12 HOURS?
     Route: 058
     Dates: start: 20160829, end: 20160915
  13. CARDIZEM [Concomitant]
     Active Substance: DILTIAZEM HYDROCHLORIDE
  14. ZYRTEC [Concomitant]
     Active Substance: CETIRIZINE HYDROCHLORIDE
  15. TYLENOL 8HR ARTHRITIS [Concomitant]
  16. IRON [Concomitant]
     Active Substance: IRON

REACTIONS (4)
  - Pain [None]
  - Rash [None]
  - Pruritus [None]
  - Skin discolouration [None]

NARRATIVE: CASE EVENT DATE: 20160909
